FAERS Safety Report 11700682 (Version 1)
Quarter: 2015Q4

REPORT INFORMATION
  Report Type: Other
  Country: US (occurrence: US)
  Receive Date: 20151105
  Receipt Date: 20151105
  Transmission Date: 20160304
  Serious: Yes (Hospitalization, Other)
  Sender: FDA-Public Use
  Company Number: US-SHIRE-US201513339

PATIENT
  Sex: Male
  Weight: 108.84 kg

DRUGS (20)
  1. SYMBICORT [Concomitant]
     Active Substance: BUDESONIDE\FORMOTEROL FUMARATE DIHYDRATE
     Indication: PRODUCT USED FOR UNKNOWN INDICATION
     Dosage: 2 PUFFS, 2X/DAY:BID
     Route: 055
     Dates: start: 20150921
  2. CINRYZE [Suspect]
     Active Substance: HUMAN C1-ESTERASE INHIBITOR
     Indication: HEREDITARY ANGIOEDEMA
     Dosage: 1000 UNITS, OTHER (3 TIMES WEEKLY)
     Route: 042
  3. STERILE WATER [Concomitant]
     Active Substance: WATER
     Indication: MEDICATION DILUTION
     Dosage: 5 ML, OTHER (AS DIRECTED)
     Route: 065
     Dates: start: 20151016
  4. EPIPEN [Concomitant]
     Active Substance: EPINEPHRINE
     Indication: ANAPHYLACTIC REACTION
     Dosage: 0.3 MG, AS REQ^D
     Route: 030
     Dates: start: 20151016
  5. DANAZOL. [Concomitant]
     Active Substance: DANAZOL
     Indication: PRODUCT USED FOR UNKNOWN INDICATION
     Dosage: 1 DF, OTHER (AS DIRECTED)
     Route: 048
     Dates: start: 20150120
  6. COMBIVENT [Concomitant]
     Active Substance: ALBUTEROL SULFATE\IPRATROPIUM BROMIDE
     Indication: PRODUCT USED FOR UNKNOWN INDICATION
     Dosage: 1 DF, OTHER (AS DIRECTED)
     Route: 065
     Dates: start: 20150120
  7. IBUPROFEN. [Concomitant]
     Active Substance: IBUPROFEN
     Indication: PRODUCT USED FOR UNKNOWN INDICATION
     Dosage: 1 DF, OTHER (AS DIRECTED)
     Route: 048
     Dates: start: 20150120
  8. CINRYZE [Suspect]
     Active Substance: HUMAN C1-ESTERASE INHIBITOR
     Indication: PROPHYLAXIS
  9. HYDROCODONE BITARTRATE AND ACETAMINOPHEN [Concomitant]
     Active Substance: ACETAMINOPHEN\HYDROCODONE BITARTRATE
     Indication: PRODUCT USED FOR UNKNOWN INDICATION
     Dosage: 1 DF, OTHER (AS DIRECTED)
     Route: 048
     Dates: start: 20150120
  10. DOXYCYCLINE. [Concomitant]
     Active Substance: DOXYCYCLINE
     Indication: PRODUCT USED FOR UNKNOWN INDICATION
     Dosage: 1 DF, 2X/DAY:BID
     Route: 048
     Dates: start: 20150625
  11. NAPROSYN [Concomitant]
     Active Substance: NAPROXEN
     Indication: PRODUCT USED FOR UNKNOWN INDICATION
     Dosage: 1 DF, OTHER (AS DIRECTED)
     Route: 048
     Dates: start: 20150120
  12. VITAMIN D3 [Concomitant]
     Active Substance: CHOLECALCIFEROL
     Indication: PRODUCT USED FOR UNKNOWN INDICATION
     Dosage: 1 DF, OTHER (AS DIRECTED)
     Route: 048
     Dates: start: 20150120
  13. SODIUM CHLORIDE. [Concomitant]
     Active Substance: SODIUM CHLORIDE
     Indication: CATHETER MANAGEMENT
     Dosage: (0.9%) UNK, OTHER (AS DIRECTED)
     Route: 042
     Dates: start: 20151016
  14. PANTOPRAZOLE [Concomitant]
     Active Substance: PANTOPRAZOLE SODIUM
     Indication: PRODUCT USED FOR UNKNOWN INDICATION
     Dosage: 1 DF, OTHER (AS DIRECTED)
     Route: 048
     Dates: start: 20150120
  15. DIPHENHYDRAMINE. [Concomitant]
     Active Substance: DIPHENHYDRAMINE
     Indication: PRODUCT USED FOR UNKNOWN INDICATION
     Dosage: 25 MG, OTHER (AS DIRECTED)
     Route: 048
     Dates: start: 20151016
  16. CYCLOBENZAPRINE [Concomitant]
     Active Substance: CYCLOBENZAPRINE
     Indication: PRODUCT USED FOR UNKNOWN INDICATION
     Dosage: 1 DF, OTHER (AS DIRECTED)
     Route: 048
     Dates: start: 20150120
  17. ALBUTEROL                          /00139501/ [Concomitant]
     Active Substance: ALBUTEROL
     Indication: PRODUCT USED FOR UNKNOWN INDICATION
     Dosage: 1 DF, OTHER (AS DIRECTED)
     Route: 055
     Dates: start: 20150120
  18. LMX                                /00033401/ [Concomitant]
     Indication: PREMEDICATION
     Dosage: (4%) UNK, OTHER (PRIOR TO INFUSION)
     Route: 061
     Dates: start: 20151016
  19. AMLODIPINE [Concomitant]
     Active Substance: AMLODIPINE BESYLATE
     Indication: PRODUCT USED FOR UNKNOWN INDICATION
     Dosage: 1 DF, 1X/DAY:QD
     Route: 048
     Dates: start: 20150506
  20. PROAIR HFA [Concomitant]
     Active Substance: ALBUTEROL SULFATE
     Indication: PRODUCT USED FOR UNKNOWN INDICATION
     Dosage: 1 DF, OTHER (AS DIRECTED)
     Route: 055
     Dates: start: 20150120

REACTIONS (2)
  - Inappropriate schedule of drug administration [Not Recovered/Not Resolved]
  - Self injurious behaviour [Unknown]
